FAERS Safety Report 12759945 (Version 2)
Quarter: 2016Q3

REPORT INFORMATION
  Report Type: Spontaneous
  Country: US (occurrence: US)
  Receive Date: 20160919
  Receipt Date: 20160920
  Transmission Date: 20161109
  Serious: No
  Sender: FDA-Public Use
  Company Number: US-EMD SERONO-8106935

PATIENT
  Sex: Male

DRUGS (1)
  1. REBIF [Suspect]
     Active Substance: INTERFERON BETA-1A
     Indication: MULTIPLE SCLEROSIS
     Route: 058

REACTIONS (12)
  - Injection site erythema [Unknown]
  - Neutrophil count increased [Unknown]
  - Pyrexia [Unknown]
  - Chills [Unknown]
  - Idiosyncratic drug reaction [Unknown]
  - Injection site induration [Unknown]
  - Inflammation [Unknown]
  - Injection site cellulitis [Unknown]
  - Hypoaesthesia [Unknown]
  - Central nervous system lesion [Unknown]
  - Injection site pain [Unknown]
  - Vision blurred [Unknown]

NARRATIVE: CASE EVENT DATE: 2009
